FAERS Safety Report 12925403 (Version 1)
Quarter: 2016Q4

REPORT INFORMATION
  Report Type: Spontaneous
  Country: US (occurrence: US)
  Receive Date: 20161109
  Receipt Date: 20161109
  Transmission Date: 20170207
  Serious: Yes (Hospitalization)
  Sender: FDA-Public Use
  Company Number: US-COVIS PHARMA S.A.R.L.-2016COV00071

PATIENT

DRUGS (1)
  1. LANOXIN [Suspect]
     Active Substance: DIGOXIN
     Dosage: UNK UNK, ONCE
     Dates: start: 20161031, end: 20161031

REACTIONS (2)
  - Incorrect route of drug administration [Unknown]
  - Coma [Not Recovered/Not Resolved]

NARRATIVE: CASE EVENT DATE: 20161031
